FAERS Safety Report 12188370 (Version 2)
Quarter: 2016Q2

REPORT INFORMATION
  Report Type: Report from Study
  Country: BR (occurrence: BR)
  Receive Date: 20160317
  Receipt Date: 20160627
  Transmission Date: 20160815
  Serious: Yes (Other)
  Sender: FDA-Public Use
  Company Number: BR-ABBVIE-15K-020-1335723-00

PATIENT
  Sex: Female
  Weight: 77 kg

DRUGS (14)
  1. CALCIUM [Concomitant]
     Active Substance: CALCIUM
     Indication: BONE DISORDER
     Route: 048
  2. HIGROTON [Concomitant]
     Active Substance: CHLORTHALIDONE
     Indication: DIURETIC THERAPY
     Route: 048
     Dates: start: 2013
  3. DEPURA [Concomitant]
     Active Substance: CHOLECALCIFEROL
     Indication: PRODUCT USED FOR UNKNOWN INDICATION
  4. PREDNISOLONE. [Concomitant]
     Active Substance: PREDNISOLONE
     Indication: MUSCULOSKELETAL STIFFNESS
     Route: 048
  5. HUMIRA [Suspect]
     Active Substance: ADALIMUMAB
     Route: 058
  6. DEPURA [Concomitant]
     Active Substance: CHOLECALCIFEROL
     Indication: VITAMIN SUPPLEMENTATION
     Route: 048
     Dates: start: 2011
  7. ACTONEL [Concomitant]
     Active Substance: RISEDRONATE SODIUM
     Indication: HORMONE REPLACEMENT THERAPY
  8. ACTONEL [Concomitant]
     Active Substance: RISEDRONATE SODIUM
     Indication: ARTHRITIS
     Route: 048
     Dates: start: 2012
  9. PAMELOR [Concomitant]
     Active Substance: NORTRIPTYLINE HYDROCHLORIDE
     Indication: SLEEP DISORDER THERAPY
     Route: 048
     Dates: start: 2010
  10. TRILEPTAL [Concomitant]
     Active Substance: OXCARBAZEPINE
     Indication: SLEEP DISORDER THERAPY
     Route: 048
     Dates: start: 2010
  11. HUMIRA [Suspect]
     Active Substance: ADALIMUMAB
     Indication: RHEUMATOID ARTHRITIS
     Route: 058
     Dates: start: 20110102
  12. DIOVAN [Concomitant]
     Active Substance: VALSARTAN
     Indication: PRODUCT USED FOR UNKNOWN INDICATION
  13. TRILEPTAL [Concomitant]
     Active Substance: OXCARBAZEPINE
     Indication: NERVOUS SYSTEM DISORDER
  14. EXELON [Concomitant]
     Active Substance: RIVASTIGMINE TARTRATE
     Indication: MEMORY IMPAIRMENT
     Route: 048
     Dates: start: 2010

REACTIONS (10)
  - Hypovitaminosis [Unknown]
  - Arthralgia [Recovering/Resolving]
  - Sensitivity to weather change [Unknown]
  - Fall [Unknown]
  - Headache [Unknown]
  - Fracture pain [Unknown]
  - Bone decalcification [Unknown]
  - Rib fracture [Unknown]
  - Spinal fracture [Recovered/Resolved]
  - Memory impairment [Recovering/Resolving]

NARRATIVE: CASE EVENT DATE: 2011
